FAERS Safety Report 13131967 (Version 3)
Quarter: 2017Q1

REPORT INFORMATION
  Report Type: Report from Study
  Country: DE (occurrence: DE)
  Receive Date: 20170119
  Receipt Date: 20170222
  Transmission Date: 20170428
  Serious: Yes (Hospitalization)
  Sender: FDA-Public Use
  Company Number: DE-B.I. PHARMACEUTICALS,INC./RIDGEFIELD-2016-BI-076536

PATIENT
  Age: 68 Year
  Sex: Male
  Weight: 74 kg

DRUGS (4)
  1. DOCETAXEL. [Concomitant]
     Active Substance: DOCETAXEL
     Indication: BRONCHIAL NEOPLASM
     Dosage: FORM OF ADMINISTRATION: SOLUTION, UNIT DOSE: 75UG/M2
     Route: 042
     Dates: start: 20161031, end: 20161031
  2. VARGATEF [Suspect]
     Active Substance: NINTEDANIB
     Route: 048
     Dates: start: 20161123, end: 20161128
  3. VARGATEF [Suspect]
     Active Substance: NINTEDANIB
     Indication: BRONCHIAL NEOPLASM
     Route: 048
     Dates: start: 20161101, end: 20161120
  4. VARGATEF [Suspect]
     Active Substance: NINTEDANIB
     Route: 048
     Dates: start: 20161217, end: 20161226

REACTIONS (5)
  - Post procedural haemorrhage [Recovered/Resolved]
  - Dyspnoea [Not Recovered/Not Resolved]
  - Diarrhoea [Recovered/Resolved]
  - Pneumonia [Recovered/Resolved]
  - Pneumonia [Not Recovered/Not Resolved]

NARRATIVE: CASE EVENT DATE: 20161104
